FAERS Safety Report 13171506 (Version 2)
Quarter: 2018Q1

REPORT INFORMATION
  Report Type: Spontaneous
  Country: US (occurrence: US)
  Receive Date: 20170131
  Receipt Date: 20180126
  Transmission Date: 20180508
  Serious: No
  Sender: FDA-Public Use
  Company Number: US-ABBVIE-16K-163-1772311-00

PATIENT

DRUGS (1)
  1. HUMIRA [Suspect]
     Active Substance: ADALIMUMAB
     Indication: HIDRADENITIS
     Route: 058

REACTIONS (5)
  - Psychiatric symptom [Unknown]
  - Drug effect incomplete [Unknown]
  - Anxiety [Not Recovered/Not Resolved]
  - Hidradenitis [Unknown]
  - Depression [Not Recovered/Not Resolved]
